FAERS Safety Report 6809835-9 (Version None)
Quarter: 2010Q2

REPORT INFORMATION
  Report Type: 
  Country: None (occurrence: None)
  Receive Date: 20100630
  Receipt Date: 20100628
  Transmission Date: 20101027
  Serious: Yes (Hospitalization)
  Sender: FDA-Public Use
  Company Number: DE-WYE-G05416010

PATIENT
  Sex: Male
  Weight: 78 kg

DRUGS (9)
  1. TORISEL [Suspect]
     Indication: METASTATIC RENAL CELL CARCINOMA
     Route: 042
     Dates: start: 20091216, end: 20100223
  2. BISOPROLOL FUMARATE [Concomitant]
  3. TORASEMIDE [Concomitant]
  4. FENISTIL [Concomitant]
     Indication: PREMEDICATION
     Dosage: 4 MG PRIOR TO TORISEL ADMINISTRATION
     Dates: start: 20091216
  5. PANTOPRAZOLE [Concomitant]
  6. AMLODIPINE [Concomitant]
  7. ALUMINIUM HYDROXIDE GEL/MAGNESIUM HYDROXIDE [Concomitant]
  8. RAMIPRIL [Concomitant]
  9. IBUPROFEN [Concomitant]

REACTIONS (2)
  - ANAEMIA [None]
  - JAUNDICE [None]
